FAERS Safety Report 6486178-7 (Version None)
Quarter: 2009Q4

REPORT INFORMATION
  Report Type: 
  Country: None (occurrence: None)
  Receive Date: 20091209
  Receipt Date: 20090806
  Transmission Date: 20100525
  Serious: No
  Sender: FDA-Public Use
  Company Number: US-AMGEN-KDL357065

PATIENT
  Sex: Female

DRUGS (7)
  1. ENBREL [Suspect]
     Indication: RHEUMATOID ARTHRITIS
     Route: 058
     Dates: start: 20090721
  2. METHOTREXATE [Concomitant]
     Dates: start: 20090522
  3. IBUPROFEN [Concomitant]
     Dates: start: 20090101
  4. DARVOCET-N 100 [Concomitant]
  5. FOLIC ACID [Concomitant]
     Dates: start: 20090522
  6. PREDNISONE [Concomitant]
     Dates: start: 20090522
  7. UNSPECIFIED MEDICATION [Concomitant]
     Dates: start: 20090101

REACTIONS (2)
  - HEADACHE [None]
  - STRESS [None]
